FAERS Safety Report 17029087 (Version 1)
Quarter: 2019Q4

REPORT INFORMATION
  Report Type: Spontaneous
  Country: CA (occurrence: CA)
  Receive Date: 20191114
  Receipt Date: 20191114
  Transmission Date: 20200122
  Serious: Yes (Other)
  Sender: FDA-Public Use
  Company Number: CA-ORION CORPORATION ORION PHARMA-TREX2019-5384

PATIENT

DRUGS (1)
  1. METHOTREXATE (TRADE NAME UNKNOWN) [Suspect]
     Active Substance: METHOTREXATE
     Indication: DERMATITIS ATOPIC
     Route: 065

REACTIONS (4)
  - Condition aggravated [Unknown]
  - Drug ineffective for unapproved indication [Unknown]
  - Dermatitis atopic [Unknown]
  - Product use in unapproved indication [Unknown]
